FAERS Safety Report 9288862 (Version 1)
Quarter: 2013Q2

REPORT INFORMATION
  Report Type: Spontaneous
  Country: GB (occurrence: GB)
  Receive Date: 20130514
  Receipt Date: 20130514
  Transmission Date: 20140414
  Serious: Yes (Other)
  Sender: FDA-Public Use
  Company Number: GB-ABBOTT-13P-167-1067709-00

PATIENT
  Sex: Female
  Weight: 81.3 kg

DRUGS (8)
  1. HUMIRA [Suspect]
     Indication: CROHN^S DISEASE
     Dates: start: 201202, end: 201202
  2. HUMIRA [Suspect]
  3. HUMIRA [Suspect]
  4. HUMIRA [Suspect]
     Dates: start: 201301, end: 2013
  5. HUMIRA [Suspect]
     Dates: start: 2013
  6. HUMIRA [Suspect]
     Route: 058
     Dates: start: 201204, end: 201304
  7. ASACOL [Concomitant]
     Indication: CROHN^S DISEASE
     Route: 048
  8. AZATHIOPRINE [Concomitant]
     Indication: VOMITING
     Route: 048

REACTIONS (8)
  - Flushing [Not Recovered/Not Resolved]
  - Pruritus [Not Recovered/Not Resolved]
  - Sinusitis [Not Recovered/Not Resolved]
  - Dyspnoea [Not Recovered/Not Resolved]
  - Lower respiratory tract infection [Not Recovered/Not Resolved]
  - Dyspnoea [Unknown]
  - Lower respiratory tract infection [Recovered/Resolved]
  - Pyoderma [Unknown]
